FAERS Safety Report 4781476-7 (Version None)
Quarter: 2005Q3

REPORT INFORMATION
  Report Type: 
  Country: None (occurrence: None)
  Receive Date: 20050914
  Receipt Date: 20050107
  Transmission Date: 20060218
  Serious: Yes (Death)
  Sender: FDA-Public Use
  Company Number: 163-20785-05010150

PATIENT
  Age: 65 Year
  Sex: Female

DRUGS (1)
  1. THALOMID [Suspect]
     Indication: AMYLOIDOSIS
     Dosage: 200 MG, DAILY, PER ORAL
     Route: 048
     Dates: start: 20041122, end: 20041201

REACTIONS (2)
  - CARDIAC ARREST [None]
  - DEATH [None]
